FAERS Safety Report 25749050 (Version 1)
Quarter: 2025Q3

REPORT INFORMATION
  Report Type: Report from Study
  Country: CN (occurrence: CN)
  Receive Date: 20250902
  Receipt Date: 20250902
  Transmission Date: 20251020
  Serious: Yes (Other)
  Sender: ROCHE
  Company Number: CN-ROCHE-10000361376

PATIENT
  Age: 77 Year
  Sex: Male
  Weight: 72 kg

DRUGS (20)
  1. POLATUZUMAB VEDOTIN [Suspect]
     Active Substance: POLATUZUMAB VEDOTIN
     Indication: Diffuse large B-cell lymphoma
     Route: 042
     Dates: start: 20240606, end: 20240606
  2. GAZYVA [Suspect]
     Active Substance: OBINUTUZUMAB
     Indication: Diffuse large B-cell lymphoma
     Route: 042
     Dates: start: 20240715, end: 20240715
  3. ORELABRUTINIB [Suspect]
     Active Substance: ORELABRUTINIB
     Indication: Diffuse large B-cell lymphoma
     Route: 048
     Dates: start: 20240605, end: 2024
  4. ZUBERITAMAB [Suspect]
     Active Substance: ZUBERITAMAB
     Indication: Diffuse large B-cell lymphoma
     Route: 042
     Dates: start: 20240605, end: 20240605
  5. AMLODIPINE BESYLATE [Concomitant]
     Active Substance: AMLODIPINE BESYLATE
  6. METOPROLOL TARTRATE [Concomitant]
     Active Substance: METOPROLOL TARTRATE
  7. CIMETIDINE [Concomitant]
     Active Substance: CIMETIDINE
  8. DEXAMETHASONE SODIUM PHOSPHATE [Concomitant]
     Active Substance: DEXAMETHASONE SODIUM PHOSPHATE
  9. DIPHENHYDRAMINE [Concomitant]
     Active Substance: DIPHENHYDRAMINE
  10. LIDOCAINE HYDROCHLORIDE [Concomitant]
     Active Substance: LIDOCAINE HYDROCHLORIDE
  11. HYDROCORTISONE SODIUM SUCCINATE [Concomitant]
     Active Substance: HYDROCORTISONE SODIUM SUCCINATE
  12. APREPITANT [Concomitant]
     Active Substance: APREPITANT
  13. MORPHINE [Concomitant]
     Active Substance: MORPHINE
  14. PALONOSETRON [Concomitant]
     Active Substance: PALONOSETRON
  15. EFBEMALENOGRASTIM ALFA [Concomitant]
     Active Substance: EFBEMALENOGRASTIM ALFA
  16. METHYLPREDNISOLONE [Concomitant]
     Active Substance: METHYLPREDNISOLONE
  17. BICYCLOL [Concomitant]
     Active Substance: BICYCLOL
  18. OXYCODONE [Concomitant]
     Active Substance: OXYCODONE
  19. IBUPROFEN [Concomitant]
     Active Substance: IBUPROFEN
  20. GENTAMICIN SULFATE [Concomitant]
     Active Substance: GENTAMICIN SULFATE

REACTIONS (2)
  - C-reactive protein increased [Not Recovered/Not Resolved]
  - Lymphocyte count decreased [Not Recovered/Not Resolved]

NARRATIVE: CASE EVENT DATE: 20240715
